FAERS Safety Report 5874695-X (Version None)
Quarter: 2008Q3

REPORT INFORMATION
  Report Type: 
  Country: None (occurrence: None)
  Receive Date: 20080909
  Receipt Date: 20080908
  Transmission Date: 20090109
  Serious: Yes (Hospitalization)
  Sender: FDA-Public Use
  Company Number: IT-BRISTOL-MYERS SQUIBB COMPANY-14327191

PATIENT
  Age: 74 Year
  Sex: Female

DRUGS (5)
  1. CORGARD [Suspect]
     Route: 048
     Dates: start: 20080101, end: 20080713
  2. LANOXIN [Suspect]
     Dosage: 1 DOSAGE FORM=0.25MG TAB
     Route: 048
     Dates: start: 20080101, end: 20080713
  3. ALLOPURINOL [Concomitant]
     Route: 048
     Dates: start: 20080101, end: 20080713
  4. TORVAST [Concomitant]
     Dosage: 1DF:10MG TAB
     Route: 048
     Dates: start: 20080101, end: 20080713
  5. ASPIRIN [Concomitant]
     Dosage: 1DF:100MG TAB
     Route: 048
     Dates: start: 20080101, end: 20080713

REACTIONS (2)
  - BRADYCARDIA [None]
  - FACIAL PARESIS [None]
